FAERS Safety Report 10172713 (Version 2)
Quarter: 2014Q2

REPORT INFORMATION
  Report Type: Spontaneous
  Country: US (occurrence: US)
  Receive Date: 20140515
  Receipt Date: 20140515
  Transmission Date: 20141212
  Serious: No
  Sender: FDA-Public Use
  Company Number: US-MYLANLABS-2012S1018229

PATIENT
  Sex: Male

DRUGS (2)
  1. OXYBUTYNIN CHLORIDE EXTENDED-RELEASE [Suspect]
     Indication: POLLAKIURIA
     Dates: start: 201207, end: 20120829
  2. TAMSULOSIN [Suspect]
     Indication: POLLAKIURIA
     Dates: start: 201207, end: 20120829

REACTIONS (2)
  - Drug ineffective [Recovered/Resolved]
  - Nocturia [Recovered/Resolved]
